FAERS Safety Report 4556970-4 (Version None)
Quarter: 2005Q1

REPORT INFORMATION
  Report Type: 
  Country: None (occurrence: None)
  Receive Date: 20050118
  Receipt Date: 20050103
  Transmission Date: 20050727
  Serious: Yes (Other)
  Sender: FDA-Public Use
  Company Number: 2004-0007611

PATIENT
  Sex: Female

DRUGS (1)
  1. VIREAD [Suspect]
     Indication: HIV INFECTION
     Dosage: 300 MG, ORAL
     Route: 048

REACTIONS (3)
  - ANTIBODY TEST POSITIVE [None]
  - THROMBOCYTOPENIC PURPURA [None]
  - VON WILLEBRAND'S DISEASE [None]
